FAERS Safety Report 15639491 (Version 2)
Quarter: 2019Q1

REPORT INFORMATION
  Report Type: Report from Study
  Country: US (occurrence: US)
  Receive Date: 20181120
  Receipt Date: 20190304
  Transmission Date: 20190417
  Serious: Yes (Hospitalization, Other)
  Sender: FDA-Public Use
  Company Number: US-BAYER-2018-039062

PATIENT
  Age: 60 Year
  Sex: Male
  Weight: 113.38 kg

DRUGS (8)
  1. TYLENOL [Concomitant]
     Active Substance: ACETAMINOPHEN
  2. LACTOSE [Concomitant]
     Active Substance: LACTOSE
  3. PROZAC [Concomitant]
     Active Substance: FLUOXETINE HYDROCHLORIDE
  4. NEXAVAR [Suspect]
     Active Substance: SORAFENIB
     Indication: HEPATIC CANCER
     Dosage: 400 MG, BID
     Route: 048
     Dates: start: 20180222
  5. NEXAVAR [Suspect]
     Active Substance: SORAFENIB
     Indication: HEPATIC CANCER
     Dosage: 200 MG, EVERY MORNING AND 400 MG, EVERY EVENING
     Route: 048
     Dates: end: 2018
  6. GABAPENTIN. [Concomitant]
     Active Substance: GABAPENTIN
  7. TACROLIMUS. [Concomitant]
     Active Substance: TACROLIMUS
  8. ASPIRIN [ACETYLSALICYLIC ACID] [Concomitant]
     Active Substance: ASPIRIN

REACTIONS (3)
  - Diverticulitis [None]
  - Chest pain [Unknown]
  - Lower respiratory tract infection [None]

NARRATIVE: CASE EVENT DATE: 201802
